FAERS Safety Report 5538396-X (Version None)
Quarter: 2007Q4

REPORT INFORMATION
  Report Type: 
  Country: None (occurrence: None)
  Receive Date: 20071205
  Receipt Date: 20071119
  Transmission Date: 20080405
  Serious: Yes (Hospitalization)
  Sender: FDA-Public Use
  Company Number: 2007VX002008

PATIENT
  Age: 40 Year
  Sex: Male
  Weight: 107.9561 kg

DRUGS (7)
  1. INTERFERON ALFACON-1 [Suspect]
     Indication: HEPATITIS C
     Dosage: 15 UG; TIW; SC
     Route: 058
     Dates: start: 20070101
  2. RIBAVIRIN [Concomitant]
  3. LEXAPRO [Concomitant]
  4. PROTONIX [Concomitant]
  5. VERAPAMIL [Concomitant]
  6. NITROGLYCERIN [Concomitant]
  7. METOPROLOL [Concomitant]

REACTIONS (28)
  - AGGRESSION [None]
  - ALANINE AMINOTRANSFERASE INCREASED [None]
  - AMNESIA [None]
  - ANHEDONIA [None]
  - ANTISOCIAL PERSONALITY DISORDER [None]
  - ASPARTATE AMINOTRANSFERASE INCREASED [None]
  - BIPOLAR DISORDER [None]
  - BLOOD TRIGLYCERIDES INCREASED [None]
  - COORDINATION ABNORMAL [None]
  - DEPRESSION [None]
  - DISTURBANCE IN ATTENTION [None]
  - FATIGUE [None]
  - GAIT DISTURBANCE [None]
  - HAEMATOCRIT DECREASED [None]
  - HAEMOGLOBIN DECREASED [None]
  - HIGH DENSITY LIPOPROTEIN DECREASED [None]
  - HYPERLIPIDAEMIA [None]
  - LOW DENSITY LIPOPROTEIN DECREASED [None]
  - LYMPHOCYTE COUNT DECREASED [None]
  - MANIA [None]
  - MENTAL DISORDER [None]
  - NEUTROPHIL COUNT INCREASED [None]
  - PSYCHOMOTOR HYPERACTIVITY [None]
  - PSYCHOTIC DISORDER [None]
  - RED BLOOD CELL COUNT DECREASED [None]
  - RED CELL DISTRIBUTION WIDTH INCREASED [None]
  - SPEECH DISORDER [None]
  - WHITE BLOOD CELL COUNT DECREASED [None]
